FAERS Safety Report 14023086 (Version 2)
Quarter: 2018Q3

REPORT INFORMATION
  Report Type: Spontaneous
  Country: DE (occurrence: DE)
  Receive Date: 20170929
  Receipt Date: 20180723
  Transmission Date: 20181010
  Serious: Yes (Life-Threatening, Hospitalization, Other)
  Sender: FDA-Public Use
  Company Number: DE-TEVA-808628GER

PATIENT
  Age: 90 Year
  Sex: Male
  Weight: 63 kg

DRUGS (9)
  1. ENALAPRIL/HYDROCHLOROTHIAZID [Suspect]
     Active Substance: ENALAPRIL\HYDROCHLOROTHIAZIDE
     Indication: HYPERTENSION
     Dosage: 10/25 PER DAY
     Route: 048
     Dates: end: 201709
  2. OXYCODONE HYDROCHLORIDE. [Concomitant]
     Active Substance: OXYCODONE HYDROCHLORIDE
     Dosage: 60 MG (1?0?0) 80 MG (0?0?1)
     Route: 065
  3. QUININE SULFATE. [Concomitant]
     Active Substance: QUININE SULFATE
     Route: 065
  4. PHENPROCOUMON [Concomitant]
     Active Substance: PHENPROCOUMON
     Dosage: 3 MG INR TARGET 2?3
     Route: 065
  5. OMEPRAZOL [Concomitant]
     Active Substance: OMEPRAZOLE
     Dosage: 40 MILLIGRAM DAILY;
     Route: 065
  6. DULOXETIN [Concomitant]
     Active Substance: DULOXETINE
     Dosage: 30 MILLIGRAM DAILY;
     Route: 065
  7. OXYCODONE HYDROCHLORIDE. [Concomitant]
     Active Substance: OXYCODONE HYDROCHLORIDE
     Route: 065
  8. PREGABALIN. [Concomitant]
     Active Substance: PREGABALIN
     Dosage: 25 MILLIGRAM DAILY;
     Route: 065
  9. MACROGOL [Concomitant]
     Active Substance: POLYETHYLENE GLYCOLS
     Route: 065

REACTIONS (3)
  - Gait disturbance [Recovered/Resolved]
  - Hyponatraemia [Recovered/Resolved]
  - Delirium [Recovered/Resolved]

NARRATIVE: CASE EVENT DATE: 201709
